FAERS Safety Report 4473858-8 (Version None)
Quarter: 2004Q4

REPORT INFORMATION
  Report Type: 
  Country: None (occurrence: None)
  Receive Date: 20041008
  Receipt Date: 20041008
  Transmission Date: 20050328
  Serious: Yes (Hospitalization)
  Sender: FDA-Public Use
  Company Number: None

PATIENT
  Sex: Male
  Weight: 92.6 kg

DRUGS (4)
  1. CISPLATIN [Suspect]
     Indication: SQUAMOUS CELL CARCINOMA
     Dosage: 235 MG DAY 1 IV
     Route: 042
     Dates: start: 20040923, end: 20040923
  2. VICODIN [Concomitant]
  3. FLUCONAZOLE [Concomitant]
  4. GATIFLOXIN [Concomitant]

REACTIONS (8)
  - ABDOMINAL PAIN [None]
  - BACK PAIN [None]
  - BACTERIAL CULTURE POSITIVE [None]
  - CHILLS [None]
  - CULTURE POSITIVE [None]
  - FUNGUS CULTURE POSITIVE [None]
  - NEOPLASM [None]
  - PYREXIA [None]
